FAERS Safety Report 25437808 (Version 2)
Quarter: 2025Q2

REPORT INFORMATION
  Report Type: Spontaneous
  Country: US (occurrence: US)
  Receive Date: 20250616
  Receipt Date: 20250620
  Transmission Date: 20250717
  Serious: Yes (Other)
  Sender: ORGANON
  Company Number: US-ORGANON-O2506USA001215

PATIENT
  Age: 47 Year
  Sex: Female

DRUGS (2)
  1. NEXPLANON [Suspect]
     Active Substance: ETONOGESTREL
     Route: 059
     Dates: start: 20250318, end: 20250407
  2. NEXPLANON [Suspect]
     Active Substance: ETONOGESTREL
     Route: 059
     Dates: start: 20250430, end: 20250515

REACTIONS (6)
  - Implant site necrosis [Recovering/Resolving]
  - Implant site necrosis [Recovering/Resolving]
  - Impaired healing [Recovering/Resolving]
  - Impaired healing [Recovering/Resolving]
  - Weight decreased [Unknown]
  - Device placement issue [Recovered/Resolved]

NARRATIVE: CASE EVENT DATE: 20250101
